FAERS Safety Report 5819157-0 (Version None)
Quarter: 2008Q3

REPORT INFORMATION
  Report Type: 
  Country: None (occurrence: None)
  Receive Date: 20080723
  Receipt Date: 20080717
  Transmission Date: 20090109
  Serious: Yes (Other)
  Sender: FDA-Public Use
  Company Number: A0738198A

PATIENT

DRUGS (2)
  1. COREG CR [Suspect]
     Indication: HYPERTENSION
     Route: 048
  2. UNKNOWN [Concomitant]

REACTIONS (2)
  - DELIRIUM [None]
  - DEMENTIA [None]
